FAERS Safety Report 19902786 (Version 1)
Quarter: 2021Q4

REPORT INFORMATION
  Report Type: Report from Study
  Country: None (occurrence: SE)
  Receive Date: 20211001
  Receipt Date: 20211001
  Transmission Date: 20220303
  Serious: Yes (Other)
  Sender: FDA-Public Use
  Company Number: SE-ABBVIE-21K-150-4099339-00

PATIENT
  Sex: Female
  Weight: 63 kg

DRUGS (3)
  1. CARBIDOPA\LEVODOPA [Suspect]
     Active Substance: CARBIDOPA\LEVODOPA
     Indication: Parkinson^s disease
     Dosage: THERAPY DURATION: REMAINS AT 16H
     Route: 050
     Dates: start: 20180122
  2. CARBIDOPA\LEVODOPA [Suspect]
     Active Substance: CARBIDOPA\LEVODOPA
     Dosage: CURRENT DOSAGE: MORNING DOSE: 7 ML, CONTINUOUS DOSE: 2.9 ML/H, EXTRA DOSE: 1.2 ML
     Route: 050
     Dates: start: 20210927
  3. CARBIDOPA\LEVODOPA [Suspect]
     Active Substance: CARBIDOPA\LEVODOPA
     Dosage: CONTINUOUS DOSE AFTERNOON: 3.2ML/H (FROM 14.00 OCLOCK)
     Route: 050
     Dates: start: 20210927

REACTIONS (10)
  - Cataract [Not Recovered/Not Resolved]
  - Visual impairment [Recovered/Resolved]
  - Device physical property issue [Recovered/Resolved]
  - Glaucoma [Not Recovered/Not Resolved]
  - Blood glucose increased [Unknown]
  - Device occlusion [Unknown]
  - On and off phenomenon [Not Recovered/Not Resolved]
  - Weight decreased [Unknown]
  - Stoma site discharge [Recovered/Resolved]
  - Stoma site erythema [Unknown]
